FAERS Safety Report 14432202 (Version 1)
Quarter: 2018Q1

REPORT INFORMATION
  Report Type: Spontaneous
  Country: US (occurrence: US)
  Receive Date: 20180124
  Receipt Date: 20180124
  Transmission Date: 20180509
  Serious: No
  Sender: FDA-Public Use
  Company Number: US-LEO PHARMA-305007

PATIENT
  Age: 9 Year
  Sex: Male

DRUGS (5)
  1. 2% SALICYLIC ACID, 2% COAL TAR EXTRACT\SULFUR [Suspect]
     Active Substance: COAL TAR\SALICYLIC ACID\SULFUR
     Indication: PSORIASIS
     Route: 061
  2. 0.2% FLUOCINONIDE [Suspect]
     Active Substance: FLUOCINONIDE
     Indication: PSORIASIS
     Dosage: FOR THE SCALP
     Route: 061
  3. ERGOCALCIFEROL. [Concomitant]
     Active Substance: ERGOCALCIFEROL
     Indication: PSORIASIS
  4. COLECALCIFEROL [Concomitant]
     Active Substance: CHOLECALCIFEROL
     Indication: PSORIASIS
  5. DAIVOBET [Suspect]
     Active Substance: BETAMETHASONE DIPROPIONATE\CALCIPOTRIENE
     Indication: PSORIASIS
     Route: 061

REACTIONS (2)
  - Skin burning sensation [Unknown]
  - Drug intolerance [Unknown]
